FAERS Safety Report 7582948-2 (Version None)
Quarter: 2011Q2

REPORT INFORMATION
  Report Type: 
  Country: None (occurrence: None)
  Receive Date: 20110630
  Receipt Date: 20110620
  Transmission Date: 20111010
  Serious: Yes (Hospitalization, Other)
  Sender: FDA-Public Use
  Company Number: US-BAYER-200919325NA

PATIENT
  Age: 67 Year
  Sex: Male
  Weight: 82 kg

DRUGS (11)
  1. ATENOLOL [Concomitant]
     Dosage: 50 MG TWICE DAY
     Route: 048
  2. PLAVIX [Concomitant]
     Dosage: 75 MG DAILY
     Route: 048
  3. TRASYLOL [Suspect]
     Indication: CORONARY ARTERY BYPASS
     Dosage: INITIAL (TEST) DOSE OF 1 ML
     Route: 042
     Dates: start: 20061009, end: 20061009
  4. ACETYLSALICYLIC ACID SRT [Concomitant]
     Dosage: UNK
     Route: 048
  5. LASIX [Concomitant]
     Dosage: UNK
     Route: 042
     Dates: start: 20061009, end: 20061009
  6. DIGOXIN [Concomitant]
     Dosage: 0.25 MG DAY
     Route: 048
  7. PROTAMINE SULFATE [Concomitant]
     Dosage: 350 MG
     Route: 042
     Dates: start: 20061009, end: 20061009
  8. HEPARIN [Concomitant]
     Dosage: UNK
     Route: 042
     Dates: start: 20061009, end: 20061009
  9. TRASYLOL [Suspect]
     Dosage: LOADING DOSE OF 200 ML, FOLLOWED BY 50 ML PER HOUR
     Route: 042
     Dates: start: 20061009, end: 20061009
  10. INSULIN [Concomitant]
     Dosage: UNK
     Route: 042
     Dates: start: 20061009, end: 20061009
  11. LOPRESSOR [Concomitant]
     Dosage: 25 MG TWICE DAY
     Route: 048

REACTIONS (12)
  - UNEVALUABLE EVENT [None]
  - EMOTIONAL DISTRESS [None]
  - SCAR [None]
  - FEAR [None]
  - MULTIPLE INJURIES [None]
  - PAIN [None]
  - RENAL FAILURE [None]
  - ANXIETY [None]
  - DEPRESSION [None]
  - INJURY [None]
  - ANHEDONIA [None]
  - DISABILITY [None]
